FAERS Safety Report 23222059 (Version 1)
Quarter: 2023Q4

REPORT INFORMATION
  Report Type: Spontaneous
  Country: US (occurrence: US)
  Receive Date: 20231123
  Receipt Date: 20231123
  Transmission Date: 20240109
  Serious: No
  Sender: FDA-Public Use
  Company Number: US-BIOGEN-2023BI01233128

PATIENT
  Sex: Female

DRUGS (3)
  1. TECFIDERA [Suspect]
     Active Substance: DIMETHYL FUMARATE
     Indication: Multiple sclerosis
     Route: 050
     Dates: start: 20160121
  2. TECFIDERA [Suspect]
     Active Substance: DIMETHYL FUMARATE
     Route: 050
     Dates: start: 20160909, end: 20210803
  3. OXYCODONE [Concomitant]
     Active Substance: OXYCODONE
     Route: 050
     Dates: start: 2007

REACTIONS (1)
  - Multiple sclerosis relapse [Recovered/Resolved]
